FAERS Safety Report 13705161 (Version 1)
Quarter: 2017Q2

REPORT INFORMATION
  Report Type: Spontaneous
  Country: RU (occurrence: RU)
  Receive Date: 20170630
  Receipt Date: 20170630
  Transmission Date: 20170830
  Serious: Yes (Other)
  Sender: FDA-Public Use
  Company Number: RU-ASTRAZENECA-2017SE67109

PATIENT
  Age: 45 Year
  Sex: Male
  Weight: 116 kg

DRUGS (8)
  1. VEROSPIRON [Concomitant]
     Active Substance: SPIRONOLACTONE
  2. PREDUCTAL A [Concomitant]
  3. BRILINTA [Suspect]
     Active Substance: TICAGRELOR
     Indication: STENT PLACEMENT
     Route: 048
     Dates: start: 20170219, end: 2017
  4. BRILINTA [Suspect]
     Active Substance: TICAGRELOR
     Indication: MYOCARDIAL INFARCTION
     Route: 048
     Dates: start: 20170219, end: 2017
  5. BISOPROLOL [Concomitant]
     Active Substance: BISOPROLOL
  6. CARDIOMAGNYL [Concomitant]
     Active Substance: ASPIRIN\MAGNESIUM HYDROXIDE
  7. LORISTA [Concomitant]
     Active Substance: LOSARTAN POTASSIUM
  8. CRESTOR [Concomitant]
     Active Substance: ROSUVASTATIN CALCIUM

REACTIONS (1)
  - Vascular stent thrombosis [Unknown]
